FAERS Safety Report 24182859 (Version 1)
Quarter: 2024Q3

REPORT INFORMATION
  Report Type: Spontaneous
  Country: CN (occurrence: CN)
  Receive Date: 20240807
  Receipt Date: 20240807
  Transmission Date: 20241017
  Serious: Yes (Hospitalization, Other)
  Sender: ALKEM
  Company Number: None

PATIENT
  Age: 54 Year
  Sex: Female
  Weight: 40 kg

DRUGS (18)
  1. MOXIFLOXACIN [Suspect]
     Active Substance: MOXIFLOXACIN
     Indication: Tuberculosis
     Dosage: 400 MILLIGRAM, QD
     Route: 065
  2. MOXIFLOXACIN [Suspect]
     Active Substance: MOXIFLOXACIN
     Dosage: 400 MILLIGRAM
     Route: 065
  3. MOXIFLOXACIN [Suspect]
     Active Substance: MOXIFLOXACIN
     Dosage: 400 MILLIGRAM
     Route: 065
  4. ISONIAZID [Suspect]
     Active Substance: ISONIAZID
     Indication: Tuberculosis
     Dosage: 300 MILLIGRAM
     Route: 065
  5. ISONIAZID [Suspect]
     Active Substance: ISONIAZID
     Dosage: 300 MILLIGRAM, OD
     Route: 065
  6. LINEZOLID [Suspect]
     Active Substance: LINEZOLID
     Indication: Tuberculosis
     Dosage: 600 MILLIGRAM, OD
     Route: 065
  7. LINEZOLID [Suspect]
     Active Substance: LINEZOLID
     Dosage: 300 MILLIGRAM, OD
     Route: 065
  8. LINEZOLID [Suspect]
     Active Substance: LINEZOLID
     Dosage: UNK (RECHALLENGE DOSE)
     Route: 065
  9. MYCOPHENOLATE MOFETIL [Suspect]
     Active Substance: MYCOPHENOLATE MOFETIL
     Indication: Immunosuppressant drug therapy
     Dosage: UNK, BID (360 MILLIGRAM AT 8 O CLOCK, 180 MILLIGRAM AT 20 O CLOCK)
     Route: 065
  10. TACROLIMUS [Suspect]
     Active Substance: TACROLIMUS
     Indication: Immunosuppressant drug therapy
     Dosage: UNK, BID (2 MILLIGRAM AT 8 AM, 1.5 MILLIGRAM AT 8 PM)
     Route: 065
  11. METHYLPREDNISOLONE [Suspect]
     Active Substance: METHYLPREDNISOLONE
     Indication: Immunosuppressant drug therapy
     Dosage: 8 MILLIGRAM, QD
     Route: 065
  12. ETHAMBUTOL [Suspect]
     Active Substance: ETHAMBUTOL HYDROCHLORIDE
     Indication: Tuberculosis
     Dosage: 750 MILLIGRAM, (EVERY OTHER DAY)
     Route: 065
  13. RIFABUTIN [Suspect]
     Active Substance: RIFABUTIN
     Indication: Tuberculosis
     Dosage: 150 MILLIGRAM, QD
     Route: 065
  14. ALBUMIN HUMAN [Concomitant]
     Active Substance: ALBUMIN HUMAN
     Indication: Supplementation therapy
     Dosage: UNK
     Route: 042
  15. ALBUMIN HUMAN [Concomitant]
     Active Substance: ALBUMIN HUMAN
     Indication: Enteral nutrition
  16. CYCLOSERINE [Concomitant]
     Active Substance: CYCLOSERINE
     Indication: Tuberculosis
     Dosage: UNK
     Route: 065
  17. PYRAZINAMIDE [Concomitant]
     Active Substance: PYRAZINAMIDE
     Indication: Tuberculosis
     Dosage: 1000 MILLIGRAM (EVERY OTHER DAY)
     Route: 065
  18. RIFAPENTINE [Concomitant]
     Active Substance: RIFAPENTINE
     Indication: Tuberculosis
     Dosage: 450 MILLIGRAM, ONCE IN 2 WEEKS
     Route: 065

REACTIONS (6)
  - Disseminated tuberculosis [Unknown]
  - Myelosuppression [Recovered/Resolved]
  - Thrombocytopenia [Recovered/Resolved]
  - Peritoneal tuberculosis [Recovered/Resolved]
  - Insomnia [Unknown]
  - Drug intolerance [Unknown]

NARRATIVE: CASE EVENT DATE: 20230101
